FAERS Safety Report 6430524-7 (Version None)
Quarter: 2009Q4

REPORT INFORMATION
  Report Type: 
  Country: None (occurrence: None)
  Receive Date: 20091106
  Receipt Date: 20091030
  Transmission Date: 20100525
  Serious: Yes (Life-Threatening, Hospitalization)
  Sender: FDA-Public Use
  Company Number: A0805218D

PATIENT
  Age: 38 Year
  Sex: Female
  Weight: 61.8 kg

DRUGS (1)
  1. PAZOPANIB [Suspect]
     Indication: NEOPLASM
     Route: 048

REACTIONS (2)
  - RESPIRATORY DISTRESS [None]
  - VAGINAL HAEMORRHAGE [None]
